FAERS Safety Report 25803833 (Version 1)
Quarter: 2025Q3

REPORT INFORMATION
  Report Type: Other
  Country: CA (occurrence: CA)
  Receive Date: 20250915
  Receipt Date: 20250915
  Transmission Date: 20251020
  Serious: Yes (Other)
  Sender: PFIZER
  Company Number: CA-PFIZER INC-202500179396

PATIENT
  Age: 42 Year
  Sex: Female

DRUGS (3)
  1. FILGRASTIM [Suspect]
     Active Substance: FILGRASTIM
     Indication: Haematopoietic stem cell mobilisation
  2. CYCLOPHOSPHAMIDE [Suspect]
     Active Substance: CYCLOPHOSPHAMIDE
     Indication: Haematopoietic stem cell mobilisation
  3. BUSULFAN [Concomitant]
     Active Substance: BUSULFAN

REACTIONS (4)
  - Amegakaryocytic thrombocytopenia [Unknown]
  - Crohn^s disease [Unknown]
  - Immune thrombocytopenia [Unknown]
  - Off label use [Unknown]
